FAERS Safety Report 4540948-0 (Version None)
Quarter: 2004Q4

REPORT INFORMATION
  Report Type: 
  Country: None (occurrence: None)
  Receive Date: 20041229
  Receipt Date: 20041220
  Transmission Date: 20050328
  Serious: Yes (Hospitalization)
  Sender: FDA-Public Use
  Company Number: 388918

PATIENT
  Age: 68 Year
  Sex: Female

DRUGS (6)
  1. ARTIST [Suspect]
     Indication: HYPERTENSION
     Route: 048
     Dates: start: 20040515, end: 20041014
  2. SELBEX [Concomitant]
     Dates: start: 20040515, end: 20041014
  3. GASMOTIN [Concomitant]
     Dates: start: 20040515, end: 20041014
  4. FERROUS CITRATE [Concomitant]
     Dates: start: 20040515, end: 20041014
  5. DEPAS [Concomitant]
     Dates: start: 20040515, end: 20041014
  6. NELBON [Concomitant]
     Dates: start: 20040515, end: 20041014

REACTIONS (5)
  - ALANINE AMINOTRANSFERASE INCREASED [None]
  - ASPARTATE AMINOTRANSFERASE INCREASED [None]
  - HEPATOTOXICITY [None]
  - MALAISE [None]
  - NAUSEA [None]
